FAERS Safety Report 23738335 (Version 4)
Quarter: 2024Q2

REPORT INFORMATION
  Report Type: Spontaneous
  Country: PL (occurrence: PL)
  Receive Date: 20240412
  Receipt Date: 20240627
  Transmission Date: 20240716
  Serious: Yes (Death, Hospitalization, Other)
  Sender: FDA-Public Use
  Company Number: PL-002147023-NVSC2024PL075304

PATIENT
  Age: 33 Year
  Sex: Female

DRUGS (3)
  1. KESIMPTA [Suspect]
     Active Substance: OFATUMUMAB
     Indication: Multiple sclerosis
     Dosage: UNK
     Route: 065
     Dates: start: 20230124, end: 20240402
  2. KESIMPTA [Suspect]
     Active Substance: OFATUMUMAB
     Dosage: UNK
     Route: 065
     Dates: start: 20230124, end: 20240402
  3. KESIMPTA [Suspect]
     Active Substance: OFATUMUMAB
     Dosage: UNK
     Route: 065
     Dates: start: 20230124, end: 20240402

REACTIONS (7)
  - Hepatic cancer [Fatal]
  - Abdominal pain [Fatal]
  - Neoplasm [Fatal]
  - Hepatocellular carcinoma [Fatal]
  - Hepatic failure [Fatal]
  - Child-Pugh-Turcotte score abnormal [Fatal]
  - Metastases to peritoneum [Unknown]

NARRATIVE: CASE EVENT DATE: 20240301
